FAERS Safety Report 26156130 (Version 1)
Quarter: 2025Q4

REPORT INFORMATION
  Report Type: Spontaneous
  Country: US (occurrence: US)
  Receive Date: 20251215
  Receipt Date: 20251215
  Transmission Date: 20260118
  Serious: No
  Sender: ALCON
  Company Number: US-ALCON LABORATORIES-ALC2025US006312

PATIENT
  Age: 84 Year
  Sex: Female

DRUGS (3)
  1. ACOLTREMON [Suspect]
     Active Substance: ACOLTREMON
     Indication: Product used for unknown indication
     Dosage: 1 DROP INTO BOTH EYES TWICE A DAY APPROXIMATELY 12 HOURS APART
     Route: 047
     Dates: start: 20251017, end: 20251025
  2. OLMESARTAN [Concomitant]
     Active Substance: OLMESARTAN
     Indication: Blood pressure measurement
     Dosage: EVERY DAY IN THE MORNING
     Route: 065
  3. SIMVASTATIN [Concomitant]
     Active Substance: SIMVASTATIN
     Indication: Blood cholesterol
     Dosage: 1 EVERY OTHER DAY USUALLY IN THE MORNING
     Route: 065

REACTIONS (3)
  - Vision blurred [Recovered/Resolved]
  - Ocular discomfort [Unknown]
  - Eye irritation [Recovered/Resolved]
